FAERS Safety Report 18001627 (Version 4)
Quarter: 2020Q3

REPORT INFORMATION
  Report Type: Report from Study
  Country: MX (occurrence: MX)
  Receive Date: 20200709
  Receipt Date: 20200717
  Transmission Date: 20201103
  Serious: Yes (Death)
  Sender: FDA-Public Use
  Company Number: MX-CELGENEUS-MEX-20200701842

PATIENT
  Age: 71 Year
  Sex: Female

DRUGS (2)
  1. VIDAZA [Suspect]
     Active Substance: AZACITIDINE
     Indication: MYELODYSPLASTIC SYNDROME
     Dosage: 100 MG Q 24 HR FOR 7 DAYS; CYCLE 1
     Route: 058
     Dates: start: 20161201
  2. VIDAZA [Suspect]
     Active Substance: AZACITIDINE
     Dosage: 100 MG Q 24 HR FOR 7 DAYS; CYCLE 23
     Route: 058
     Dates: start: 20190129

REACTIONS (1)
  - Death [Fatal]

NARRATIVE: CASE EVENT DATE: 20200612
